FAERS Safety Report 4318615-8 (Version None)
Quarter: 2004Q1

REPORT INFORMATION
  Report Type: 
  Country: None (occurrence: None)
  Receive Date: 20040315
  Receipt Date: 20040315
  Transmission Date: 20041129
  Serious: Yes (Disabling)
  Sender: FDA-Public Use
  Company Number: None

PATIENT
  Age: 13 Year
  Sex: Male
  Weight: 108.8633 kg

DRUGS (3)
  1. RISPERDAL [Suspect]
     Indication: OBSESSIVE-COMPULSIVE DISORDER
     Dosage: 0.5 MG ORAL PER DAY
     Route: 048
     Dates: start: 20031020, end: 20040301
  2. RISPERDAL [Suspect]
     Indication: TIC
     Dosage: 0.5 MG ORAL PER DAY
     Route: 048
     Dates: start: 20031020, end: 20040301
  3. LEXAPRO [Concomitant]

REACTIONS (14)
  - ARTHRALGIA [None]
  - COMPLEX PARTIAL SEIZURES [None]
  - DIARRHOEA [None]
  - DISTURBANCE IN ATTENTION [None]
  - DRUG WITHDRAWAL SYNDROME [None]
  - DYSKINESIA [None]
  - DYSSTASIA [None]
  - EYE MOVEMENT DISORDER [None]
  - FATIGUE [None]
  - GAIT DISTURBANCE [None]
  - JAUNDICE [None]
  - NAUSEA [None]
  - SPEECH DISORDER [None]
  - TREMOR [None]
